FAERS Safety Report 9362855 (Version 2)
Quarter: 2013Q3

REPORT INFORMATION
  Report Type: Spontaneous
  Country: US (occurrence: US)
  Receive Date: 20130624
  Receipt Date: 20130722
  Transmission Date: 20140515
  Serious: No
  Sender: FDA-Public Use
  Company Number: US-ASTRAZENECA-2013SE40669

PATIENT
  Age: 71 Year
  Sex: Female

DRUGS (5)
  1. SYMBICORT [Suspect]
     Dosage: 160 MCG/4.5 MCG TWO TIMES A DAY
     Route: 055
     Dates: start: 2013
  2. WATER PILL [Concomitant]
     Dosage: NOT ASKED
     Route: 048
  3. POTASSIUM [Concomitant]
     Indication: MUSCLE SPASMS
     Dosage: NOT ASKED
  4. NEBULIZER MEDICATION [Concomitant]
     Dosage: NOT ASKED PRN
     Route: 055
  5. GRAVES DISEASE PILLS [Concomitant]
     Dosage: NOT ASKED
     Route: 048

REACTIONS (4)
  - Goitre [Unknown]
  - Fatigue [Unknown]
  - Drug dose omission [Unknown]
  - Intentional drug misuse [Unknown]
